FAERS Safety Report 13240528 (Version 1)
Quarter: 2017Q1

REPORT INFORMATION
  Report Type: Spontaneous
  Country: US (occurrence: US)
  Receive Date: 20170216
  Receipt Date: 20170216
  Transmission Date: 20170428
  Serious: No
  Sender: FDA-Public Use
  Company Number: US-RELYPSA-RLY2016003615

PATIENT
  Age: 76 Year
  Sex: Female

DRUGS (14)
  1. SOTALOL HCL [Concomitant]
     Active Substance: SOTALOL
  2. VELTASSA [Suspect]
     Active Substance: PATIROMER
     Dosage: 16.8 G, QD
     Route: 048
     Dates: start: 20160813
  3. BUSPIRONE [Concomitant]
     Active Substance: BUSPIRONE HYDROCHLORIDE
  4. PROPAFENONE. [Concomitant]
     Active Substance: PROPAFENONE
  5. VITAMIN D [Concomitant]
     Active Substance: CHOLECALCIFEROL
  6. ZANTAC [Concomitant]
     Active Substance: RANITIDINE HYDROCHLORIDE
     Dosage: 450 MG, QD
  7. MAGNESIUM [Concomitant]
     Active Substance: MAGNESIUM
  8. LACTULOSE. [Concomitant]
     Active Substance: LACTULOSE
  9. VITAMIN B12 [Concomitant]
     Active Substance: CYANOCOBALAMIN
  10. VELTASSA [Suspect]
     Active Substance: PATIROMER
     Indication: HYPERKALAEMIA
     Dosage: 8.4 G, QD
     Route: 048
     Dates: start: 20160224, end: 20160812
  11. PROBIOTICS NOS [Concomitant]
     Active Substance: PROBIOTICS NOS
  12. LISINOPRIL. [Concomitant]
     Active Substance: LISINOPRIL
  13. ELIQUIS [Concomitant]
     Active Substance: APIXABAN
  14. VELTASSA [Suspect]
     Active Substance: PATIROMER
     Dosage: 16.8 G, QD
     Route: 048
     Dates: start: 20160813

REACTIONS (3)
  - Blood potassium increased [Unknown]
  - Dyspepsia [Unknown]
  - Constipation [Not Recovered/Not Resolved]

NARRATIVE: CASE EVENT DATE: 20160630
